FAERS Safety Report 18444107 (Version 1)
Quarter: 2020Q4

REPORT INFORMATION
  Report Type: Spontaneous
  Country: ES (occurrence: ES)
  Receive Date: 20201030
  Receipt Date: 20201030
  Transmission Date: 20210114
  Serious: Yes (Other)
  Sender: FDA-Public Use
  Company Number: ES-SCIEGEN-2020SCILIT00360

PATIENT
  Age: 57 Year
  Sex: Female

DRUGS (1)
  1. LAMOTRIGINE TABLETS [Suspect]
     Active Substance: LAMOTRIGINE
     Indication: PETIT MAL EPILEPSY
     Route: 065

REACTIONS (2)
  - Rash maculo-papular [Recovering/Resolving]
  - Pulmonary granuloma [Recovering/Resolving]
